FAERS Safety Report 19840923 (Version 1)
Quarter: 2021Q3

REPORT INFORMATION
  Report Type: Spontaneous
  Country: US (occurrence: US)
  Receive Date: 20210916
  Receipt Date: 20210916
  Transmission Date: 20211014
  Serious: No
  Sender: FDA-Public Use
  Company Number: None

PATIENT
  Age: 30 Year
  Sex: Female

DRUGS (3)
  1. DEXAMATHASONE 6 MG DAILY [Concomitant]
     Dates: start: 20210901
  2. IVERMECTIN. [Suspect]
     Active Substance: IVERMECTIN
     Indication: COVID-19
  3. NAC 600 MG TWICE DAILY [Concomitant]
     Dates: start: 20210901

REACTIONS (3)
  - Abdominal pain [None]
  - Liver injury [None]
  - Liver function test increased [None]

NARRATIVE: CASE EVENT DATE: 20210905
